FAERS Safety Report 15247014 (Version 4)
Quarter: 2018Q3

REPORT INFORMATION
  Report Type: Report from Study
  Country: CN (occurrence: CN)
  Receive Date: 20180806
  Receipt Date: 20180924
  Transmission Date: 20181010
  Serious: Yes (Death, Life-Threatening, Hospitalization)
  Sender: FDA-Public Use
  Company Number: CN-AMGEN-CHNCT2018093375

PATIENT
  Age: 67 Year
  Sex: Male
  Weight: 71.2 kg

DRUGS (32)
  1. MONTMORILLONITE [Concomitant]
     Active Substance: MONTMORILLONITE
     Dosage: 1 UNK, UNK
     Route: 048
     Dates: start: 20180618, end: 20180619
  2. ZOLPIDEM TARTRATE. [Concomitant]
     Active Substance: ZOLPIDEM TARTRATE
     Dosage: 10 MG, UNK
     Route: 048
     Dates: start: 20180425, end: 20180425
  3. CYTARABINE. [Concomitant]
     Active Substance: CYTARABINE
     Dosage: 50 TO 100 MG, UNK
     Dates: start: 20180522, end: 20180627
  4. AVELOX [Concomitant]
     Active Substance: MOXIFLOXACIN HYDROCHLORIDE
     Dosage: 100 MG, UNK
     Route: 048
     Dates: start: 20180530, end: 20180615
  5. NYSFUNGIN [Concomitant]
     Dosage: 300 MG, UNK
     Route: 050
     Dates: start: 20180619, end: 20180702
  6. VORICONAZOLE. [Concomitant]
     Active Substance: VORICONAZOLE
     Dosage: 400 MG, UNK
     Route: 042
     Dates: start: 20180621, end: 20180702
  7. SULPERAZON [Concomitant]
     Active Substance: CEFOPERAZONE SODIUM\SULBACTAM SODIUM
     Dosage: 3 MG, UNK
     Route: 042
     Dates: start: 20180520, end: 20180523
  8. SODIUM CHLORIDE. [Concomitant]
     Active Substance: SODIUM CHLORIDE
     Dosage: 0.09 MG AND 0.09 G, UNK
     Route: 037
     Dates: start: 20180522, end: 20180614
  9. HEPARIN SODIUM. [Concomitant]
     Active Substance: HEPARIN SODIUM
     Dosage: 0.625 UNK, UNK
     Route: 042
     Dates: start: 20180424, end: 20180520
  10. ALBUMIN PREPARED FROM HUMAN PLASMA [Concomitant]
     Dosage: 20 MG, UNK
     Route: 042
     Dates: start: 20180509, end: 20180516
  11. LORATADINE. [Concomitant]
     Active Substance: LORATADINE
     Dosage: 10 MG, UNK
     Route: 048
     Dates: start: 20180505, end: 20180606
  12. DEXAMETHASONE SODIUM PHOSPHATE. [Concomitant]
     Active Substance: DEXAMETHASONE SODIUM PHOSPHATE
     Dosage: 5?10 MG, UNK
     Dates: start: 20180425, end: 20180628
  13. IMIPENEM [Concomitant]
     Active Substance: IMIPENEM
     Indication: RESPIRATORY FAILURE
     Dosage: 1 MG, UNK
     Route: 042
     Dates: start: 20180620, end: 20180702
  14. VANCOMYCIN HYDROCHLORIDE. [Concomitant]
     Active Substance: VANCOMYCIN HYDROCHLORIDE
     Dosage: 1000 MG, UNK
     Route: 042
     Dates: start: 20180522, end: 20180702
  15. FLUCONAZOLE. [Concomitant]
     Active Substance: FLUCONAZOLE
     Dosage: 300 MG, UNK
     Route: 048
     Dates: start: 20180619, end: 20180621
  16. PIPERACILLIN SODIUM W/SULBACTAM SODIUM [Concomitant]
     Dosage: 5 G, UNK
     Route: 042
     Dates: start: 20180619, end: 20180620
  17. BLINATUMOMAB [Suspect]
     Active Substance: BLINATUMOMAB
     Indication: B PRECURSOR TYPE ACUTE LEUKAEMIA
     Dosage: 28 MUG, QD
     Route: 042
     Dates: start: 20180424, end: 20180703
  18. COMBIZYM [Concomitant]
     Dosage: 24 MG, UNK
     Route: 048
     Dates: start: 20180517, end: 20180530
  19. METHOTREXATE. [Concomitant]
     Active Substance: METHOTREXATE
     Dosage: 10 TO 500 MG, UNK
     Route: 037
     Dates: start: 20180522, end: 20180627
  20. FAMOTIDINE. [Concomitant]
     Active Substance: FAMOTIDINE
     Dosage: 20 MG, UNK
     Route: 048
     Dates: start: 20180503, end: 20180615
  21. POTASSIUM CHLORIDE. [Concomitant]
     Active Substance: POTASSIUM CHLORIDE
     Dosage: 500 TO 1000 MG, UNK
     Route: 048
     Dates: start: 20180601, end: 20180702
  22. FLUNARIZINE HYDROCHLORIDE [Concomitant]
     Active Substance: FLUNARIZINE HYDROCHLORIDE
     Dosage: 5 MG, UNK
     Route: 048
     Dates: start: 20180425, end: 20180425
  23. ACICLOVIR [Concomitant]
     Active Substance: ACYCLOVIR
     Dosage: 400 MG, UNK
     Route: 048
     Dates: start: 20180530, end: 20180607
  24. FUROSEMIDE. [Concomitant]
     Active Substance: FUROSEMIDE
     Dosage: 20 MG, UNK
     Route: 042
     Dates: start: 20180507, end: 20180630
  25. CEFTAZIDIME. [Concomitant]
     Active Substance: CEFTAZIDIME
     Dosage: 2 G, UNK
     Route: 042
     Dates: start: 20180507, end: 20180518
  26. IMIPENEM+CILASTATIN [Concomitant]
     Active Substance: CILASTATIN SODIUM\IMIPENEM
     Dosage: 1 MG, UNK
     Route: 042
     Dates: start: 20180620, end: 20180702
  27. DEXAMETHASONE. [Concomitant]
     Active Substance: DEXAMETHASONE
     Dosage: 20 MG, UNK
     Dates: start: 20180424, end: 20180605
  28. OXYCODONE AND ACETAMINOPHEN [Concomitant]
     Active Substance: ACETAMINOPHEN\OXYCODONE HYDROCHLORIDE
     Dosage: 5 MG, UNK
     Route: 048
     Dates: start: 20180522, end: 20180522
  29. LIDOCAINE HYDROCHLORIDE. [Concomitant]
     Active Substance: LIDOCAINE HYDROCHLORIDE
     Dosage: 0.1 G AND 0.1 MG, UNK
     Route: 058
     Dates: start: 20180522, end: 20180627
  30. MANNITOL. [Concomitant]
     Active Substance: MANNITOL
     Dosage: 25 MG UNK, UNK 100 ML UNK, UNK AND 25 G UNK, UNK
     Route: 042
     Dates: start: 20180519, end: 20180522
  31. POTASSIUM CITRATE. [Concomitant]
     Active Substance: POTASSIUM CITRATE
     Dosage: 1.45 MG, UNK
     Route: 048
     Dates: start: 20180425, end: 20180504
  32. CEFACLOR. [Concomitant]
     Active Substance: CEFACLOR
     Dosage: 0.25 G, UNK
     Route: 048
     Dates: start: 20180615, end: 20180619

REACTIONS (1)
  - Respiratory failure [Unknown]

NARRATIVE: CASE EVENT DATE: 20180709
